FAERS Safety Report 10014423 (Version 3)
Quarter: 2014Q2

REPORT INFORMATION
  Report Type: Spontaneous
  Country: US (occurrence: US)
  Receive Date: 20140317
  Receipt Date: 20140422
  Transmission Date: 20141212
  Serious: Yes (Other)
  Sender: FDA-Public Use
  Company Number: US-BEH-2014041055

PATIENT
  Sex: Female

DRUGS (3)
  1. HIZENTRA [Suspect]
  2. HIZENTRA [Suspect]
     Indication: PRIMARY IMMUNODEFICIENCY SYNDROME
  3. HIZENTRA [Suspect]

REACTIONS (4)
  - Accident [Recovering/Resolving]
  - Brain injury [Recovering/Resolving]
  - Spinal column injury [Recovering/Resolving]
  - Eye disorder [Recovering/Resolving]
